FAERS Safety Report 10870891 (Version 1)
Quarter: 2015Q1

REPORT INFORMATION
  Report Type: Spontaneous
  Country: US (occurrence: US)
  Receive Date: 20150226
  Receipt Date: 20150226
  Transmission Date: 20150721
  Serious: Yes (Other)
  Sender: FDA-Public Use
  Company Number: US-JNJFOC-20150218955

PATIENT

DRUGS (2)
  1. IBUPROFEN. [Suspect]
     Active Substance: IBUPROFEN
     Indication: PATENT DUCTUS ARTERIOSUS
     Route: 048
  2. INDOMETHACIN. [Suspect]
     Active Substance: INDOMETHACIN
     Indication: PATENT DUCTUS ARTERIOSUS
     Route: 048

REACTIONS (7)
  - Oxygen supplementation [Unknown]
  - Haemorrhage [Unknown]
  - Gastrointestinal disorder [Unknown]
  - Necrotising colitis [Unknown]
  - Off label use [Unknown]
  - Oliguria [Unknown]
  - Intraventricular haemorrhage [Unknown]
